FAERS Safety Report 13020402 (Version 1)
Quarter: 2016Q4

REPORT INFORMATION
  Report Type: Spontaneous
  Country: TH (occurrence: TH)
  Receive Date: 20161212
  Receipt Date: 20161212
  Transmission Date: 20170207
  Serious: Yes (Hospitalization, Other)
  Sender: FDA-Public Use
  Company Number: TH-IMPAX LABORATORIES, INC-2016-IPXL-02271

PATIENT
  Age: 15 Year
  Sex: Female

DRUGS (15)
  1. METHIMAZOLE. [Concomitant]
     Active Substance: METHIMAZOLE
     Dosage: 5 MG, 1 /DAY, DAY 9
     Route: 065
  2. METHIMAZOLE. [Concomitant]
     Active Substance: METHIMAZOLE
     Dosage: 20 MG, EVERY 6HR
     Route: 065
  3. METHIMAZOLE. [Concomitant]
     Active Substance: METHIMAZOLE
     Dosage: 17.5 MG, 1 /DAY, DAY 30
  4. METHIMAZOLE. [Concomitant]
     Active Substance: METHIMAZOLE
     Dosage: 10 MG, 1 /DAY, DAY 40
     Route: 065
  5. METHIMAZOLE. [Concomitant]
     Active Substance: METHIMAZOLE
     Dosage: 10 MG/KG, 1 /DAY
     Route: 065
  6. METHIMAZOLE. [Concomitant]
     Active Substance: METHIMAZOLE
     Dosage: 10 MG, 1 /DAY, DAY 8 AND DAY 13
     Route: 065
  7. METHIMAZOLE. [Concomitant]
     Active Substance: METHIMAZOLE
     Indication: BASEDOW^S DISEASE
     Dosage: UNK
     Route: 065
  8. METHIMAZOLE. [Concomitant]
     Active Substance: METHIMAZOLE
     Dosage: 40 MG, 1 /DAY, DAY 1
     Route: 065
  9. METHIMAZOLE. [Concomitant]
     Active Substance: METHIMAZOLE
     Dosage: 80 MG, 1 /DAY, DAY 3 AND 4
     Route: 065
  10. PROPRANOLOL HYDROCHLORIDE IR [Suspect]
     Active Substance: PROPRANOLOL HYDROCHLORIDE
     Indication: PRODUCT USED FOR UNKNOWN INDICATION
     Dosage: 20 MG, EVERY 8HR
     Route: 065
  11. METHIMAZOLE. [Concomitant]
     Active Substance: METHIMAZOLE
     Dosage: 40 MG, 1 /DAY, DAY 0
     Route: 065
  12. METHIMAZOLE. [Concomitant]
     Active Substance: METHIMAZOLE
     Dosage: 60 MG, 1 /DAY, DAY 5
     Route: 065
  13. METHIMAZOLE. [Concomitant]
     Active Substance: METHIMAZOLE
     Dosage: 60 MG, 1 /DAY, DAY 2
     Route: 065
  14. METHIMAZOLE. [Concomitant]
     Active Substance: METHIMAZOLE
     Dosage: 45 MG, 1 /DAY, DAY 6 AND 7
     Route: 065
  15. METHIMAZOLE. [Concomitant]
     Active Substance: METHIMAZOLE
     Dosage: 15 MG, 1 /DAY, DAY 16, 18 AND 19
     Route: 065

REACTIONS (3)
  - Generalised tonic-clonic seizure [Unknown]
  - Multiple organ dysfunction syndrome [Unknown]
  - Cardiogenic shock [Unknown]
